FAERS Safety Report 8390099-2 (Version None)
Quarter: 2012Q2

REPORT INFORMATION
  Report Type: 
  Country: None (occurrence: None)
  Receive Date: 20120529
  Receipt Date: 20120524
  Transmission Date: 20120825
  Serious: Yes (Other)
  Sender: FDA-Public Use
  Company Number: PHHY2012US030008

PATIENT
  Age: 56 Year
  Sex: Female

DRUGS (4)
  1. METOPROLOL TARTRATE [Suspect]
  2. NIFEDIPINE [Suspect]
  3. AMITRIPTYLINE HCL [Suspect]
  4. CITALOPRAM HYDROBROMIDE [Suspect]

REACTIONS (1)
  - SHOCK [None]
